FAERS Safety Report 6843109-5 (Version None)
Quarter: 2010Q3

REPORT INFORMATION
  Report Type: 
  Country: None (occurrence: None)
  Receive Date: 20100715
  Receipt Date: 20100707
  Transmission Date: 20110219
  Serious: Yes (Hospitalization)
  Sender: FDA-Public Use
  Company Number: US-BIOGENIDEC-2010BI000928

PATIENT
  Age: 24 Year
  Sex: Female

DRUGS (2)
  1. AVONEX [Suspect]
     Indication: MULTIPLE SCLEROSIS
     Route: 030
     Dates: start: 20050103, end: 20050704
  2. AVONEX [Suspect]
     Route: 030
     Dates: start: 20061201

REACTIONS (5)
  - BLINDNESS UNILATERAL [None]
  - SUICIDE ATTEMPT [None]
  - TREMOR [None]
  - VIITH NERVE PARALYSIS [None]
  - VISION BLURRED [None]
